FAERS Safety Report 15577299 (Version 1)
Quarter: 2018Q4

REPORT INFORMATION
  Report Type: Report from Study
  Country: CN (occurrence: CN)
  Receive Date: 20181102
  Receipt Date: 20181102
  Transmission Date: 20190205
  Serious: Yes (Other)
  Sender: FDA-Public Use
  Company Number: CN-ACCORD-090651

PATIENT
  Age: 17 Year
  Sex: Female

DRUGS (1)
  1. TOPIRAMATE. [Suspect]
     Active Substance: TOPIRAMATE
     Indication: MYOCLONIC EPILEPSY AND RAGGED-RED FIBRES
     Dosage: 100-500 MG/D

REACTIONS (1)
  - Condition aggravated [Not Recovered/Not Resolved]
